FAERS Safety Report 12920424 (Version 7)
Quarter: 2017Q1

REPORT INFORMATION
  Report Type: Spontaneous
  Country: US (occurrence: US)
  Receive Date: 20161108
  Receipt Date: 20170329
  Transmission Date: 20170428
  Serious: Yes (Congenital Anomaly, Other)
  Sender: FDA-Public Use
  Company Number: PHEH2016US028826

PATIENT
  Sex: Male

DRUGS (4)
  1. ONDANSETRON [Suspect]
     Active Substance: ONDANSETRON
     Indication: FOETAL EXPOSURE DURING PREGNANCY
     Dosage: MOTHER^S DOSE: 4 MG, Q6H
     Route: 064
  2. ONDANSETRON [Suspect]
     Active Substance: ONDANSETRON
     Indication: FOETAL EXPOSURE DURING PREGNANCY
     Route: 064
  3. ZOFRAN [Suspect]
     Active Substance: ONDANSETRON HYDROCHLORIDE
     Indication: FOETAL EXPOSURE DURING PREGNANCY
     Dosage: MOTHER^S DOSE: 04 MG, Q8H
     Route: 064
  4. ONDANSETRON [Suspect]
     Active Substance: ONDANSETRON
     Indication: FOETAL EXPOSURE DURING PREGNANCY
     Dosage: MOTHER^S DOSE: 4 MG, UNK
     Route: 064

REACTIONS (38)
  - Atrial septal defect [Unknown]
  - Neonatal tachypnoea [Unknown]
  - Influenza [Unknown]
  - Candida infection [Unknown]
  - Right aortic arch [Unknown]
  - Heart disease congenital [Unknown]
  - Autism spectrum disorder [Unknown]
  - Diarrhoea neonatal [Unknown]
  - Seborrhoea [Unknown]
  - Bronchiolitis [Unknown]
  - Right atrial dilatation [Unknown]
  - Injury [Unknown]
  - Wheezing [Unknown]
  - Tremor [Unknown]
  - Jaundice neonatal [Unknown]
  - Foetal exposure during pregnancy [Unknown]
  - Rhinorrhoea [Unknown]
  - Blepharospasm [Unknown]
  - Dyspnoea [Unknown]
  - Pulmonary valve stenosis congenital [Unknown]
  - Neonatal hepatomegaly [Unknown]
  - Right ventricular hypertension [Unknown]
  - Tibial torsion [Unknown]
  - Fever neonatal [Unknown]
  - Foaming at mouth [Unknown]
  - Constipation [Unknown]
  - Anomalous pulmonary venous connection [Unknown]
  - Neonatal pneumonia [Unknown]
  - Right ventricular dilatation [Unknown]
  - Right ventricular hypertrophy [Unknown]
  - Cardiac murmur [Unknown]
  - Otitis media [Unknown]
  - Upper respiratory tract infection [Unknown]
  - Ear infection [Unknown]
  - Speech disorder [Unknown]
  - Language disorder [Unknown]
  - Convulsion neonatal [Unknown]
  - Gait disturbance [Unknown]
